FAERS Safety Report 23168291 (Version 1)
Quarter: 2023Q4

REPORT INFORMATION
  Report Type: Spontaneous
  Country: PT (occurrence: PT)
  Receive Date: 20231109
  Receipt Date: 20231109
  Transmission Date: 20240109
  Serious: Yes (Hospitalization, Other)
  Sender: FDA-Public Use
  Company Number: PT-AUROBINDO-AUR-APL-2023-004877

PATIENT
  Age: 71 Year
  Sex: Male

DRUGS (7)
  1. CAPTOPRIL [Suspect]
     Active Substance: CAPTOPRIL
     Indication: Hypertension
     Dosage: 25 MILLIGRAM
     Route: 060
  2. CAPTOPRIL [Suspect]
     Active Substance: CAPTOPRIL
     Indication: Prophylaxis
  3. HYDROCORTISONE [Suspect]
     Active Substance: HYDROCORTISONE
     Indication: Product used for unknown indication
     Dosage: 400 MILLIGRAM
     Route: 065
  4. ASPIRIN [Concomitant]
     Active Substance: ASPIRIN
     Indication: Product used for unknown indication
     Dosage: UNK
     Route: 065
  5. EPINEPHRINE [Concomitant]
     Active Substance: EPINEPHRINE
     Indication: Product used for unknown indication
     Dosage: 0.1 MILLIGRAM
     Route: 042
  6. CLEMASTINE [Concomitant]
     Active Substance: CLEMASTINE
     Indication: Product used for unknown indication
     Dosage: 2 MILLIGRAM
     Route: 065
  7. OMEPRAZOLE [Concomitant]
     Active Substance: OMEPRAZOLE
     Indication: Product used for unknown indication
     Dosage: UNK
     Route: 065

REACTIONS (7)
  - Angioedema [Recovered/Resolved]
  - Laryngeal oedema [Recovered/Resolved]
  - Spinal cord oedema [Recovered/Resolved]
  - Dyspnoea [Recovered/Resolved]
  - Salivary hypersecretion [Recovered/Resolved]
  - Swollen tongue [Recovered/Resolved]
  - Protrusion tongue [Recovered/Resolved]
